FAERS Safety Report 19784628 (Version 2)
Quarter: 2024Q4

REPORT INFORMATION
  Report Type: Spontaneous
  Country: IT (occurrence: IT)
  Receive Date: 20210903
  Receipt Date: 20241106
  Transmission Date: 20250115
  Serious: Yes (Other)
  Sender: ISTITUTO BICHIMICO ITALIANO GIOVANNI LORENZINI (IBIGEN)
  Company Number: None

PATIENT
  Age: 69 Year
  Sex: Female

DRUGS (13)
  1. OXYGEN [Concomitant]
     Active Substance: OXYGEN
     Dosage: ()
  2. IOPAMIDOL [Suspect]
     Active Substance: IOPAMIDOL
     Dosage: ()
  3. HYDROXYCHLOROQUINE [Suspect]
     Active Substance: HYDROXYCHLOROQUINE
     Dosage: ()
  4. SARILUMAB [Suspect]
     Active Substance: SARILUMAB
     Dosage: ()
  5. OMEPRAZOLE [Concomitant]
     Active Substance: OMEPRAZOLE
     Dosage: ()
  6. PREDNISONE [Concomitant]
     Active Substance: PREDNISONE
     Dosage: ()
  7. PIPERACILLIN SODIUM\TAZOBACTAM SODIUM [Suspect]
     Active Substance: PIPERACILLIN SODIUM\TAZOBACTAM SODIUM
     Dosage: ()
  8. LOPINAVIR\RITONAVIR [Suspect]
     Active Substance: LOPINAVIR\RITONAVIR
     Dosage: ()
  9. ENOXAPARIN [Concomitant]
     Active Substance: ENOXAPARIN
     Dosage: () ()
  10. HYDROXYZINE [Concomitant]
     Active Substance: HYDROXYZINE HYDROCHLORIDE
     Dosage: ()
  11. SPIRONOLACTONE [Concomitant]
     Active Substance: SPIRONOLACTONE
     Dosage: ()
  12. LEVOFLOXACIN [Concomitant]
     Active Substance: LEVOFLOXACIN
     Dosage: ()
  13. FUROSEMIDE [Concomitant]
     Active Substance: FUROSEMIDE
     Dosage: ()

REACTIONS (1)
  - Drug reaction with eosinophilia and systemic symptoms [Recovered/Resolved]
